FAERS Safety Report 7081400-0 (Version None)
Quarter: 2010Q4

REPORT INFORMATION
  Report Type: 
  Country: None (occurrence: None)
  Receive Date: 20101103
  Receipt Date: 20101022
  Transmission Date: 20110411
  Serious: Yes (Death, Hospitalization, Other)
  Sender: FDA-Public Use
  Company Number: PE-JNJFOC-20091103158

PATIENT
  Age: 68 Year
  Sex: Male

DRUGS (3)
  1. REMICADE [Suspect]
     Indication: ANKYLOSING SPONDYLITIS
     Dosage: 3RD DOSE
     Route: 042
  2. REMICADE [Suspect]
     Route: 042
  3. REMICADE [Suspect]
     Dosage: WEEK 0, 2, 6, AND THEN EVERY 8 WEEKS. 12 AMPULES REQUIRED 1ST 3 DOSES
     Route: 042

REACTIONS (18)
  - ACUTE RESPIRATORY FAILURE [None]
  - ANAEMIA [None]
  - BACK PAIN [None]
  - BRONCHOPNEUMONIA [None]
  - DEPRESSION [None]
  - DISSEMINATED TUBERCULOSIS [None]
  - GASTROINTESTINAL HAEMORRHAGE [None]
  - HEPATITIS [None]
  - HYPERSOMNIA [None]
  - HYPOTENSION [None]
  - HYPOVOLAEMIC SHOCK [None]
  - MULTI-ORGAN FAILURE [None]
  - OESOPHAGITIS [None]
  - PAIN [None]
  - PAIN IN EXTREMITY [None]
  - SEPSIS [None]
  - SPLENOMEGALY [None]
  - TREMOR [None]
